FAERS Safety Report 22047399 (Version 1)
Quarter: 2023Q1

REPORT INFORMATION
  Report Type: Spontaneous
  Country: HR (occurrence: HR)
  Receive Date: 20230301
  Receipt Date: 20230301
  Transmission Date: 20230417
  Serious: Yes (Other)
  Sender: FDA-Public Use
  Company Number: HR-ABBVIE-4323282

PATIENT
  Sex: Male

DRUGS (2)
  1. VENETOCLAX [Suspect]
     Active Substance: VENETOCLAX
     Indication: Acute myeloid leukaemia
     Dosage: 100 MILLIGRAM?6 CYCLES (28-DAY CYCLE)
     Route: 048
     Dates: start: 202209
  2. AZACITIDINE [Concomitant]
     Active Substance: AZACITIDINE
     Indication: Product used for unknown indication
     Dates: start: 202209

REACTIONS (3)
  - Pancytopenia [Recovered/Resolved]
  - Bacteraemia [Recovered/Resolved]
  - Neutropenia [Not Recovered/Not Resolved]
